FAERS Safety Report 5176363-9 (Version None)
Quarter: 2006Q4

REPORT INFORMATION
  Report Type: 
  Country: None (occurrence: None)
  Receive Date: 20061215
  Receipt Date: 20061019
  Transmission Date: 20070319
  Serious: Yes (Death, Hospitalization, Disabling, Other)
  Sender: FDA-Public Use
  Company Number: ZA-NOVOPROD-257942

PATIENT
  Sex: Female
  Weight: 62 kg

DRUGS (4)
  1. NOVOMIX 30 [Suspect]
     Indication: INSULIN-REQUIRING TYPE II DIABETES MELLITUS
     Dosage: 49 U, QD
     Route: 058
     Dates: start: 20060330, end: 20060820
  2. NOVOMIX 30 [Suspect]
     Dosage: 51 IU, QD
     Route: 058
     Dates: start: 20060820, end: 20060927
  3. NOVOMIX 30 [Suspect]
     Dosage: 34 U, QD
     Route: 058
     Dates: start: 20060927
  4. COVERSYL                           /00790701/ [Concomitant]
     Indication: HYPERTENSION
     Dosage: 1 TAB, QD

REACTIONS (5)
  - GLYCOSYLATED HAEMOGLOBIN INCREASED [None]
  - HYPOGLYCAEMIA [None]
  - HYPOGLYCAEMIC COMA [None]
  - MULTI-ORGAN FAILURE [None]
  - PNEUMONIA [None]
